FAERS Safety Report 19283459 (Version 1)
Quarter: 2021Q2

REPORT INFORMATION
  Report Type: Spontaneous
  Country: US (occurrence: US)
  Receive Date: 20210521
  Receipt Date: 20210521
  Transmission Date: 20210717
  Serious: Yes (Other)
  Sender: FDA-Public Use
  Company Number: US-DRREDDYS-USA/USA/21/0135743

PATIENT
  Age: 24 Year
  Sex: Male

DRUGS (5)
  1. VINBLASTINE [Concomitant]
     Active Substance: VINBLASTINE
     Indication: XANTHOGRANULOMA
  2. LEUCOVORIN. [Concomitant]
     Active Substance: LEUCOVORIN
     Indication: XANTHOGRANULOMA
  3. PREDNISONE. [Concomitant]
     Active Substance: PREDNISONE
     Indication: XANTHOGRANULOMA
     Dosage: HIGH DOSE
  4. METHOTREXATE. [Suspect]
     Active Substance: METHOTREXATE
     Indication: XANTHOGRANULOMA
  5. MERCAPTOPURINE. [Suspect]
     Active Substance: MERCAPTOPURINE
     Indication: XANTHOGRANULOMA

REACTIONS (1)
  - Pancytopenia [Unknown]
